FAERS Safety Report 16445498 (Version 1)
Quarter: 2019Q2

REPORT INFORMATION
  Report Type: Spontaneous
  Country: US (occurrence: US)
  Receive Date: 20190618
  Receipt Date: 20190618
  Transmission Date: 20190711
  Serious: No
  Sender: FDA-Public Use
  Company Number: US-PFIZER INC-2019257461

PATIENT
  Age: 73 Year
  Sex: Male
  Weight: 92.97 kg

DRUGS (2)
  1. DETROL LA [Suspect]
     Active Substance: TOLTERODINE TARTRATE
     Indication: MICTURITION URGENCY
     Dosage: 1 DF, DAILY(ONE CAP ONCE A DAY)
     Route: 048
  2. VIAGRA [Concomitant]
     Active Substance: SILDENAFIL CITRATE
     Dosage: UNK

REACTIONS (4)
  - Penis disorder [Unknown]
  - Prostatic specific antigen increased [Unknown]
  - Erectile dysfunction [Unknown]
  - Semen volume decreased [Unknown]

NARRATIVE: CASE EVENT DATE: 201810
